FAERS Safety Report 9060324 (Version 1)
Quarter: 2013Q1

REPORT INFORMATION
  Report Type: Report from Study
  Country: CA (occurrence: CA)
  Receive Date: 20130212
  Receipt Date: 20130212
  Transmission Date: 20140127
  Serious: Yes (Hospitalization)
  Sender: FDA-Public Use
  Company Number: CA-JNJFOC-20130200953

PATIENT
  Age: 55 None
  Sex: Female
  Weight: 106 kg

DRUGS (17)
  1. REMICADE [Suspect]
     Indication: CROHN^S DISEASE
     Route: 042
     Dates: start: 20090109
  2. METFORMIN [Concomitant]
     Route: 065
  3. LOMOTIL [Concomitant]
     Route: 065
  4. PANTOLOC [Concomitant]
     Route: 065
  5. CIPRO [Concomitant]
     Route: 065
  6. METHOTREXATE [Concomitant]
     Route: 065
  7. ATENOLOL [Concomitant]
     Route: 065
  8. LIPITOR [Concomitant]
     Route: 065
  9. CYMBALTA [Concomitant]
     Route: 065
  10. K DUR [Concomitant]
     Route: 065
  11. TEMAZEPAM [Concomitant]
     Route: 065
  12. COTRIDIN [Concomitant]
     Route: 065
  13. CYCLOBENZAPRINE [Concomitant]
     Route: 065
  14. LINAGLIPTIN [Concomitant]
     Route: 065
  15. OXYCODONE [Concomitant]
     Route: 065
  16. TYLENOL 4 [Concomitant]
     Route: 065
  17. TYLENOL 3 [Concomitant]
     Route: 065

REACTIONS (1)
  - Obstruction [Unknown]
